FAERS Safety Report 4724515-1 (Version None)
Quarter: 2005Q3

REPORT INFORMATION
  Report Type: 
  Country: None (occurrence: None)
  Receive Date: 20050726
  Receipt Date: 20050722
  Transmission Date: 20060218
  Serious: Yes (Death)
  Sender: FDA-Public Use
  Company Number: GB-BOEHRINGER INGELHEIM PHARMACEUTICALS, INC.-2005-UK-01353UK

PATIENT
  Age: 65 Year
  Sex: Female
  Weight: 140 kg

DRUGS (5)
  1. PRAMIPEXOLE [Suspect]
     Indication: PARKINSON'S DISEASE
     Route: 048
     Dates: start: 20050603, end: 20050628
  2. ATORVASTATIN CALCIUM [Concomitant]
     Indication: BLOOD CHOLESTEROL INCREASED
     Route: 048
  3. CABERGOLINE [Concomitant]
     Route: 048
  4. MADOPAR [Concomitant]
     Indication: PARKINSON'S DISEASE
     Dosage: 250 MG FOUR TIMES DAILY
     Route: 048
  5. VENLAFAXINE HCL [Concomitant]
     Indication: DEPRESSION
     Route: 048

REACTIONS (4)
  - MULTI-ORGAN FAILURE [None]
  - PEMPHIGOID [None]
  - SEPSIS [None]
  - STREPTOCOCCAL INFECTION [None]
